FAERS Safety Report 11482673 (Version 1)
Quarter: 2015Q3

REPORT INFORMATION
  Report Type: Spontaneous
  Country: US (occurrence: None)
  Receive Date: 20150908
  Receipt Date: 20150908
  Transmission Date: 20151125
  Serious: Yes (Hospitalization)
  Sender: FDA-Public Use
  Company Number: None

PATIENT
  Age: 71 Year
  Sex: Male
  Weight: 96.16 kg

DRUGS (8)
  1. IBUPROFEN. [Concomitant]
     Active Substance: IBUPROFEN
  2. TRILIPIX [Suspect]
     Active Substance: FENOFIBRIC ACID
     Indication: BLOOD TRIGLYCERIDES INCREASED
     Dosage: 1  ONCE DAILY TAKEN BY MOUTH
     Route: 048
     Dates: start: 20120501, end: 20150904
  3. AMLODIPINE [Concomitant]
     Active Substance: AMLODIPINE BESYLATE
  4. GLUCOSAMINE [Concomitant]
     Active Substance: GLUCOSAMINE
  5. DIGOXIN. [Concomitant]
     Active Substance: DIGOXIN
  6. LOSARTAN. [Concomitant]
     Active Substance: LOSARTAN
  7. FISH OIL [Concomitant]
     Active Substance: FISH OIL
  8. ATENOLOL. [Concomitant]
     Active Substance: ATENOLOL

REACTIONS (1)
  - Pancreatitis [None]

NARRATIVE: CASE EVENT DATE: 20121107
